FAERS Safety Report 17089773 (Version 1)
Quarter: 2019Q4

REPORT INFORMATION
  Report Type: Spontaneous
  Country: US (occurrence: US)
  Receive Date: 20191128
  Receipt Date: 20191128
  Transmission Date: 20200122
  Serious: Yes (Death, Other)
  Sender: FDA-Public Use
  Company Number: US-BAXTER-2019BAX024173

PATIENT
  Age: 51 Year
  Sex: Female
  Weight: 85.5 kg

DRUGS (37)
  1. CYTARABINE. [Suspect]
     Active Substance: CYTARABINE
     Dosage: FLAG-IDA X
     Route: 065
     Dates: start: 20190208, end: 20190313
  2. ACYCLOVIR. [Concomitant]
     Active Substance: ACYCLOVIR
     Indication: INFECTION PROPHYLAXIS
     Dosage: TAKE 1 TABLET BY MOUTH TWO TIMES DAILY. DOSAGE FORM: TABLET
     Route: 048
  3. ALTEPLASE. [Concomitant]
     Active Substance: ALTEPLASE
     Indication: DRUG THERAPY
     Dosage: ROUTE: LNTRACATHETER. DOSAGE FORM: INTRACATHETER SOLUTION. FOR OHSU HOME INFUSION PER PROCEDURE
     Route: 050
  4. G-CSF [Suspect]
     Active Substance: GRANULOCYTE COLONY-STIMULATING FACTOR NOS
     Indication: B-CELL TYPE ACUTE LEUKAEMIA
     Dosage: FLAG-IDA X
     Route: 065
     Dates: start: 20190208, end: 20190313
  5. MYCOPHENOLATE SODIUM [Concomitant]
     Active Substance: MYCOPHENOLATE SODIUM
     Indication: PROPHYLAXIS
     Dosage: DELAYED RELEASE TABLET. TAKE THRU DAY +26 (19JUL2019). TAKE 5 TABLETS DAILY FOR 14 DAYS
     Route: 048
  6. OMEPRAZOLE. [Concomitant]
     Active Substance: OMEPRAZOLE
     Indication: GASTROOESOPHAGEAL REFLUX DISEASE
     Dosage: DELAYED RELEASE CAPSULE. BEFORE BREAKFAST. ADMINISTER 30 TO 60 MINUTES BEFORE MEALS
     Route: 048
  7. URSODIOL. [Concomitant]
     Active Substance: URSODIOL
     Indication: PROPHYLAXIS
     Dosage: TAKE 1 TABLET BY MOUTH TWO TIMES DAILY. CONTINUE THROUGH DAY +90 (9/19/19)
     Route: 048
  8. VANCOMYCIN [Concomitant]
     Active Substance: VANCOMYCIN
     Indication: DIARRHOEA INFECTIOUS
     Dosage: CONTINUE WHILE ON ANTIBIOTICS AND FOR 1 WEEK AFTER COMPLETION OF ANTIBIOTICS.
     Route: 048
  9. BUSULFAN. [Concomitant]
     Active Substance: BUSULFAN
     Indication: B-CELL TYPE ACUTE LEUKAEMIA
     Route: 065
     Dates: start: 20190414, end: 201904
  10. CYCLOPHOSPHAMIDE FOR INJECTION, USP [Suspect]
     Active Substance: CYCLOPHOSPHAMIDE
     Dosage: HYPERCVAD MAINTENANCE
     Route: 065
     Dates: start: 20181111, end: 20190128
  11. ADRIAMYCIN [Suspect]
     Active Substance: DOXORUBICIN HYDROCHLORIDE
     Indication: B-CELL TYPE ACUTE LEUKAEMIA
     Dosage: HYPER-CVAD 1A THRU 48
     Route: 065
     Dates: start: 20180507, end: 20181111
  12. ADRIAMYCIN [Suspect]
     Active Substance: DOXORUBICIN HYDROCHLORIDE
     Dosage: HYPERCVAD MAINTENANCE
     Route: 065
     Dates: start: 20181111, end: 20190128
  13. CYTARABINE. [Suspect]
     Active Substance: CYTARABINE
     Indication: B-CELL TYPE ACUTE LEUKAEMIA
     Dosage: HYPER-CVAD 1A THRU 48
     Route: 065
     Dates: start: 20180507, end: 20181111
  14. METHOTREXATE. [Suspect]
     Active Substance: METHOTREXATE
     Indication: B-CELL TYPE ACUTE LEUKAEMIA
     Dosage: HYPER-CVAD 1A THRU 48
     Route: 065
     Dates: start: 20180507, end: 20181111
  15. METHOTREXATE. [Suspect]
     Active Substance: METHOTREXATE
     Dosage: HYPERCVAD MAINTENANCE
     Route: 065
     Dates: start: 20181111, end: 20190128
  16. CYCLOPHOSPHAMIDE FOR INJECTION, USP [Suspect]
     Active Substance: CYCLOPHOSPHAMIDE
     Indication: B-CELL TYPE ACUTE LEUKAEMIA
     Dosage: HYPER-CVAD 1A THRU 4B
     Route: 065
     Dates: start: 20180507, end: 20181111
  17. VINCRISTINE [Suspect]
     Active Substance: VINCRISTINE
     Dosage: HYPERCVAD MAINTENANCE
     Route: 065
     Dates: start: 20181111, end: 20190128
  18. PROCHLORPERAZINE MALEATE. [Concomitant]
     Active Substance: PROCHLORPERAZINE MALEATE
     Indication: NAUSEA
     Dosage: TABLET. 1 TABLET FOUR TIMES DAILY AS NEEDED. MAX DOSE: 40 MG/DAY
     Route: 048
  19. PRAMIPEXOLE. [Concomitant]
     Active Substance: PRAMIPEXOLE
     Indication: RESTLESS LEGS SYNDROME
     Dosage: TABLET
     Route: 048
  20. DEXAMETHASONE. [Suspect]
     Active Substance: DEXAMETHASONE
     Indication: B-CELL TYPE ACUTE LEUKAEMIA
     Dosage: HYPER-CVAD 1A THRU 48
     Route: 065
     Dates: start: 20180507, end: 20181111
  21. DEXAMETHASONE. [Suspect]
     Active Substance: DEXAMETHASONE
     Dosage: HYPERCVAD MAINTENANCE
     Route: 065
     Dates: start: 20181111, end: 20190128
  22. FLUDARABINE [Suspect]
     Active Substance: FLUDARABINE PHOSPHATE
     Indication: B-CELL TYPE ACUTE LEUKAEMIA
     Dosage: FLAG-IDA X 1
     Route: 065
     Dates: start: 20190208, end: 20190313
  23. CYCLOSPORINE. [Concomitant]
     Active Substance: CYCLOSPORINE
     Dosage: MODIFIED. COMBINE 25 MG AND 100 MG CAPSULES TO MAKE CURRENT DOSE.
     Route: 048
     Dates: start: 20190705
  24. POSACONAZOLE [Concomitant]
     Active Substance: POSACONAZOLE
     Indication: PROPHYLAXIS
     Dosage: DELAYED RELEASE TABLET. TAKE 3 TABLETS BY MOUTH ONCE DAILY
     Route: 048
  25. INOTUZUMAB OZOGAMICIN [Suspect]
     Active Substance: INOTUZUMAB OZOGAMICIN
     Indication: B-CELL TYPE ACUTE LEUKAEMIA
     Dosage: X 2 CYCLES
     Route: 042
     Dates: start: 20190414, end: 20190510
  26. LEVOTHYROXINE. [Concomitant]
     Active Substance: LEVOTHYROXINE
     Indication: HYPOTHYROIDISM
     Dosage: DOSAGE FORM: TABLET.
     Route: 048
  27. LORATADINE. [Concomitant]
     Active Substance: LORATADINE
     Indication: PRODUCT USED FOR UNKNOWN INDICATION
     Dosage: TABLET.
     Route: 048
  28. PROCHLORPERAZINE MALEATE. [Concomitant]
     Active Substance: PROCHLORPERAZINE MALEATE
     Indication: VOMITING
  29. SODIUM CHLORIDE. [Concomitant]
     Active Substance: SODIUM CHLORIDE
     Indication: MEDICAL PROCEDURE
     Dosage: IV FLUSH. (VASCULAR ACCESS PATENCY).
     Route: 042
  30. BLINCYTO [Concomitant]
     Active Substance: BLINATUMOMAB
     Indication: B-CELL TYPE ACUTE LEUKAEMIA
     Route: 065
     Dates: start: 20190310, end: 20190414
  31. HEPARIN [Concomitant]
     Active Substance: HEPARIN SODIUM
     Indication: PRODUCT USED FOR UNKNOWN INDICATION
     Dosage: INFLUSH IV. INJECT INTO THE VEIN (IV). PICC IS HEP LOCKED
     Route: 042
  32. VINCRISTINE [Suspect]
     Active Substance: VINCRISTINE
     Indication: B-CELL TYPE ACUTE LEUKAEMIA
     Dosage: HYPER-CVAD 1A THRU 48
     Route: 065
     Dates: start: 20180507, end: 20181111
  33. CYTARABINE. [Suspect]
     Active Substance: CYTARABINE
     Dosage: HYPERCVAD MAINTENANCE
     Route: 065
     Dates: start: 20181111, end: 20190128
  34. METHOTREXATE. [Suspect]
     Active Substance: METHOTREXATE
     Dosage: FLAG-IDA X 1
     Route: 037
     Dates: start: 20190208, end: 20190313
  35. IDARUBICIN [Suspect]
     Active Substance: IDARUBICIN
     Indication: B-CELL TYPE ACUTE LEUKAEMIA
     Dosage: FLAG-IDA X 1
     Route: 065
     Dates: start: 20190208, end: 20190313
  36. CYCLOSPORINE. [Concomitant]
     Active Substance: CYCLOSPORINE
     Indication: PROPHYLAXIS
     Dosage: MODIFIED. COMBINE 25 MG AND 100 MG CAPSULES TO MAKE CURRENT DOSE.
     Route: 048
     Dates: start: 20190705
  37. RAMELTEON [Concomitant]
     Active Substance: RAMELTEON
     Indication: PRODUCT USED FOR UNKNOWN INDICATION
     Dosage: TABLET. 1 TABLET BY MOUTH ONCE DAILY 30 MINUTES BEFORE BEDTIME AS NEEDED
     Route: 048

REACTIONS (20)
  - Urinary tract infection bacterial [Unknown]
  - Acute lymphocytic leukaemia recurrent [Unknown]
  - Venoocclusive liver disease [Not Recovered/Not Resolved]
  - Klebsiella sepsis [Unknown]
  - Sinusitis [Unknown]
  - Thrombocytopenia [Unknown]
  - Infection [Unknown]
  - Death [Fatal]
  - Chondrocalcinosis pyrophosphate [Unknown]
  - Nausea [Unknown]
  - Pyrexia [Unknown]
  - Klebsiella bacteraemia [Unknown]
  - Oral herpes [Unknown]
  - Escherichia bacteraemia [Unknown]
  - Klebsiella infection [Unknown]
  - Localised infection [Unknown]
  - Portal hypertension [Not Recovered/Not Resolved]
  - Insomnia [Unknown]
  - Constipation [Unknown]
  - Anaemia [Unknown]

NARRATIVE: CASE EVENT DATE: 20180507
